FAERS Safety Report 17695332 (Version 1)
Quarter: 2020Q2

REPORT INFORMATION
  Report Type: Spontaneous
  Country: DE (occurrence: DE)
  Receive Date: 20200422
  Receipt Date: 20200422
  Transmission Date: 20200714
  Serious: Yes (Hospitalization)
  Sender: FDA-Public Use
  Company Number: NVSC2020DE107821

PATIENT
  Age: 12 Month
  Sex: Female
  Weight: 8 kg

DRUGS (3)
  1. AMOXICILLIN. [Suspect]
     Active Substance: AMOXICILLIN
     Indication: BACTERIAL INFECTION
     Dosage: UNK
     Route: 065
     Dates: start: 20181031, end: 20181101
  2. NUROFEN [Concomitant]
     Active Substance: IBUPROFEN
     Indication: PYREXIA
     Dosage: 60 MG
     Route: 054
     Dates: start: 20181031, end: 20181031
  3. PARACETAMOL [Concomitant]
     Active Substance: ACETAMINOPHEN
     Indication: PYREXIA
     Dosage: 125 MG
     Route: 054
     Dates: start: 20181031, end: 20181031

REACTIONS (2)
  - Vomiting [Unknown]
  - Food refusal [Unknown]

NARRATIVE: CASE EVENT DATE: 20181101
